FAERS Safety Report 4707845-9 (Version None)
Quarter: 2005Q3

REPORT INFORMATION
  Report Type: 
  Country: None (occurrence: None)
  Receive Date: 20050705
  Receipt Date: 20050705
  Transmission Date: 20060218
  Serious: Yes (Hospitalization)
  Sender: FDA-Public Use
  Company Number: None

PATIENT
  Sex: Male
  Weight: 78.1 kg

DRUGS (3)
  1. ALTOPREV [Suspect]
     Indication: CORONARY ARTERY DISEASE
     Dosage: 60 MG ONCE DAILY ORAL
     Route: 048
     Dates: start: 20040601, end: 20050620
  2. ALTOPREV [Suspect]
     Indication: CORONARY ARTERY SURGERY
     Dosage: 60 MG ONCE DAILY ORAL
     Route: 048
     Dates: start: 20040601, end: 20050620
  3. ALTOPREV [Suspect]
     Indication: HYPERCHOLESTEROLAEMIA
     Dosage: 60 MG ONCE DAILY ORAL
     Route: 048
     Dates: start: 20040601, end: 20050620

REACTIONS (2)
  - RESPIRATORY TRACT INFECTION [None]
  - RHABDOMYOLYSIS [None]
